FAERS Safety Report 15333485 (Version 2)
Quarter: 2018Q3

REPORT INFORMATION
  Report Type: Report from Study
  Country: FI (occurrence: FI)
  Receive Date: 20180830
  Receipt Date: 20180904
  Transmission Date: 20181010
  Serious: Yes (Life-Threatening, Hospitalization, Other)
  Sender: FDA-Public Use
  Company Number: FI-AXELLIA-001902

PATIENT
  Age: 37 Year
  Sex: Male

DRUGS (13)
  1. KALISOL [Concomitant]
  2. LEPONEX [Suspect]
     Active Substance: CLOZAPINE
     Indication: SCHIZOPHRENIA
     Dosage: UNK
     Dates: start: 20180710, end: 20180712
  3. PRIMASPAN [Concomitant]
     Active Substance: ASPIRIN
  4. ANAFRANIL [Concomitant]
     Active Substance: CLOMIPRAMINE HYDROCHLORIDE
  5. BISOPROACT [Concomitant]
     Active Substance: BISOPROLOL
  6. MAGNESIUM ASPARTATE [Concomitant]
     Active Substance: MAGNESIUM ASPARTATE
  7. OLANZAPINE ORION [Concomitant]
     Active Substance: OLANZAPINE
  8. KLEXANE [Concomitant]
     Active Substance: ENOXAPARIN
  9. LYRICA [Concomitant]
     Active Substance: PREGABALIN
  10. ZYVOXID [Concomitant]
     Active Substance: LINEZOLID
  11. VANCOMYCIN [Suspect]
     Active Substance: VANCOMYCIN
     Indication: INFECTION
     Dates: start: 20180621, end: 20180712
  12. LAPENAX [Suspect]
     Active Substance: CLOZAPINE
     Indication: PRODUCT USED FOR UNKNOWN INDICATION
     Dates: start: 20180717, end: 2018
  13. FLIXOTIDE EVOHALER [Concomitant]
     Active Substance: FLUTICASONE PROPIONATE

REACTIONS (6)
  - Multiple fractures [Unknown]
  - Wound infection bacterial [Recovered/Resolved]
  - Suicide attempt [Unknown]
  - Confusional state [Recovering/Resolving]
  - Neutropenia [Recovered/Resolved]
  - Infection [Unknown]

NARRATIVE: CASE EVENT DATE: 2018
